FAERS Safety Report 21732331 (Version 1)
Quarter: 2022Q4

REPORT INFORMATION
  Report Type: Spontaneous
  Country: US (occurrence: US)
  Receive Date: 20221215
  Receipt Date: 20221215
  Transmission Date: 20230113
  Serious: No
  Sender: FDA-Public Use
  Company Number: US-NOVEN PHARMACEUTICALS, INC.-2022-NOV-US000056

PATIENT
  Age: 8 Year
  Sex: Male

DRUGS (1)
  1. DAYTRANA [Suspect]
     Active Substance: METHYLPHENIDATE
     Indication: Attention deficit hyperactivity disorder
     Dosage: 15MG/9HR, UNKNOWN
     Route: 062

REACTIONS (2)
  - Therapeutic product ineffective [Not Recovered/Not Resolved]
  - Product storage error [Recovered/Resolved]

NARRATIVE: CASE EVENT DATE: 20220101
